FAERS Safety Report 7119093-6 (Version None)
Quarter: 2010Q4

REPORT INFORMATION
  Report Type: 
  Country: None (occurrence: None)
  Receive Date: 20101123
  Receipt Date: 20101116
  Transmission Date: 20110411
  Serious: Yes (Hospitalization)
  Sender: FDA-Public Use
  Company Number: B0685703A

PATIENT
  Sex: Female

DRUGS (1)
  1. AUGMENTIN '125' [Suspect]
     Indication: TOOTHACHE
     Dosage: 1G PER DAY
     Route: 065
     Dates: start: 20100926, end: 20100926

REACTIONS (3)
  - ERYTHEMA [None]
  - HYPOTENSION [None]
  - PRESYNCOPE [None]
